FAERS Safety Report 15544993 (Version 2)
Quarter: 2018Q4

REPORT INFORMATION
  Report Type: Spontaneous
  Country: US (occurrence: US)
  Receive Date: 20181024
  Receipt Date: 20181108
  Transmission Date: 20190205
  Serious: No
  Sender: FDA-Public Use
  Company Number: US-009507513-1810USA009877

PATIENT
  Age: 36 Year
  Sex: Female

DRUGS (1)
  1. NASONEX [Suspect]
     Active Substance: MOMETASONE FUROATE
     Indication: HYPERSENSITIVITY
     Dosage: STRENGTH: 50 MICROGRAM
     Route: 045
     Dates: start: 2015

REACTIONS (2)
  - Product quality issue [Unknown]
  - Skin laceration [Unknown]

NARRATIVE: CASE EVENT DATE: 20180914
